FAERS Safety Report 10419931 (Version 1)
Quarter: 2014Q3

REPORT INFORMATION
  Report Type: Spontaneous
  Country: US (occurrence: None)
  Receive Date: 20140828
  Receipt Date: 20140828
  Transmission Date: 20150326
  Serious: Yes (Hospitalization, Other)
  Sender: FDA-Public Use
  Company Number: 2014-20215

PATIENT
  Age: 76 Year
  Sex: Female
  Weight: 120 kg

DRUGS (1)
  1. EYLEA [Suspect]
     Active Substance: AFLIBERCEPT
     Indication: RETINAL DISORDER
     Route: 031
     Dates: start: 201312, end: 201312

REACTIONS (2)
  - Blood pressure increased [None]
  - Cerebrovascular accident [None]

NARRATIVE: CASE EVENT DATE: 20140114
